FAERS Safety Report 5567503-8 (Version None)
Quarter: 2007Q4

REPORT INFORMATION
  Report Type: 
  Country: None (occurrence: None)
  Receive Date: 20071219
  Receipt Date: 20071210
  Transmission Date: 20080405
  Serious: Yes (Other)
  Sender: FDA-Public Use
  Company Number: AU-PFIZER INC-2007097545

PATIENT
  Sex: Female

DRUGS (5)
  1. ZELDOX (CAPSULES) [Suspect]
  2. DIAZEPAM [Suspect]
  3. NARDIL [Concomitant]
  4. ATIVAN [Concomitant]
  5. METFORMIN HCL [Concomitant]
     Indication: POLYCYSTIC OVARIES

REACTIONS (9)
  - AKATHISIA [None]
  - DELIRIUM [None]
  - DRUG ABUSE [None]
  - DRUG LEVEL INCREASED [None]
  - DRUG TOXICITY [None]
  - DYSKINESIA [None]
  - EXTRAPYRAMIDAL DISORDER [None]
  - HYPERHIDROSIS [None]
  - PSYCHOTIC DISORDER [None]
